FAERS Safety Report 25458758 (Version 1)
Quarter: 2025Q2

REPORT INFORMATION
  Report Type: Spontaneous
  Country: IN (occurrence: IN)
  Receive Date: 20250620
  Receipt Date: 20250620
  Transmission Date: 20250717
  Serious: Yes (Other)
  Sender: SANDOZ
  Company Number: IN-SANDOZ-SDZ2025IN041883

PATIENT
  Age: 67 Year
  Sex: Male

DRUGS (1)
  1. TACROLIMUS [Suspect]
     Active Substance: TACROLIMUS
     Indication: Renal transplant
     Dosage: 5 MG, QD
     Route: 048

REACTIONS (8)
  - Type 2 diabetes mellitus [Unknown]
  - Heart failure with preserved ejection fraction [Unknown]
  - Gastroenteritis norovirus [Unknown]
  - Coronary artery disease [Unknown]
  - Coronavirus infection [Unknown]
  - Dyspnoea exertional [Unknown]
  - Obesity [Unknown]
  - Hypertension [Unknown]

NARRATIVE: CASE EVENT DATE: 20230115
